FAERS Safety Report 10089990 (Version 1)
Quarter: 2014Q2

REPORT INFORMATION
  Report Type: Spontaneous
  Country: US (occurrence: None)
  Receive Date: 20140417
  Receipt Date: 20140417
  Transmission Date: 20141212
  Serious: Yes (Death)
  Sender: FDA-Public Use
  Company Number: UTC-047149

PATIENT
  Age: 73 Year
  Sex: Female
  Weight: 68.03 kg

DRUGS (3)
  1. TYVASO [Suspect]
     Dosage: 18 TO 54 MCG
     Route: 055
     Dates: start: 20121002
  2. REVATIO (SILDENAFIL) [Concomitant]
  3. LETAIRIS (AMBRISENTAN) [Concomitant]

REACTIONS (1)
  - Death [None]
